FAERS Safety Report 25395613 (Version 1)
Quarter: 2025Q2

REPORT INFORMATION
  Report Type: Spontaneous
  Country: US (occurrence: US)
  Receive Date: 20250604
  Receipt Date: 20250604
  Transmission Date: 20250717
  Serious: Yes (Other)
  Sender: PFIZER
  Company Number: US-PFIZER INC-202500113206

PATIENT
  Sex: Female

DRUGS (1)
  1. DEPO-PROVERA [Suspect]
     Active Substance: MEDROXYPROGESTERONE ACETATE

REACTIONS (8)
  - Hyperthyroidism [Unknown]
  - Haemorrhage [Unknown]
  - Anaemia [Unknown]
  - Alopecia [Unknown]
  - Mood swings [Unknown]
  - Acne [Unknown]
  - Fatigue [Unknown]
  - Headache [Unknown]
